FAERS Safety Report 9196454 (Version 1)
Quarter: 2013Q1

REPORT INFORMATION
  Report Type: Spontaneous
  Country: US (occurrence: None)
  Receive Date: 20120709
  Receipt Date: 20120709
  Transmission Date: 20140127
  Serious: No
  Sender: FDA-Public Use
  Company Number: 2012HGS-003549

PATIENT
  Age: 67 Year
  Sex: Female
  Weight: 79.38 kg

DRUGS (8)
  1. BENLYSTA [Suspect]
     Indication: SYSTEMIC LUPUS ERYTHEMATOSUS
     Dates: start: 20120412
  2. PREDNISONE [Concomitant]
  3. PLAQUENIL [Concomitant]
  4. VERAPAMIL [Concomitant]
  5. ZOLOFT [Concomitant]
  6. ZOCOR [Concomitant]
  7. SYNTHROID [Concomitant]
  8. TRAZODONE [Concomitant]

REACTIONS (1)
  - Pain in extremity [None]
